FAERS Safety Report 6437931-7 (Version None)
Quarter: 2009Q4

REPORT INFORMATION
  Report Type: 
  Country: None (occurrence: None)
  Receive Date: 20091112
  Receipt Date: 20081121
  Transmission Date: 20100525
  Serious: No
  Sender: FDA-Public Use
  Company Number: US-ASTRAZENECA-2009UW17191

PATIENT
  Age: 54 Year
  Sex: Female

DRUGS (2)
  1. PRILOSEC OTC [Suspect]
     Indication: REFLUX LARYNGITIS
     Dosage: 1 TABLET, 2 /DAY
     Route: 048
     Dates: start: 20081120, end: 20081121
  2. DILANTIN [Concomitant]

REACTIONS (4)
  - DRUG INTERACTION [None]
  - FATIGUE [None]
  - MUSCLE SPASMS [None]
  - SOMNOLENCE [None]
